FAERS Safety Report 8884554 (Version 1)
Quarter: 2012Q4

REPORT INFORMATION
  Report Type: 
  Country: US (occurrence: US)
  Receive Date: 20121102
  Receipt Date: 20121102
  Transmission Date: 20130627
  Serious: No
  Sender: FDA-Public Use
  Company Number: US-ASTRAZENECA-2012SE16576

PATIENT
  Age: 55 Year
  Sex: Female
  Weight: 88.9 kg

DRUGS (15)
  1. CRESTOR [Suspect]
     Route: 048
  2. ACTOS [Concomitant]
     Route: 048
     Dates: start: 20090907
  3. AMBIEN [Concomitant]
     Route: 048
  4. AMLODIPINE [Concomitant]
     Route: 048
     Dates: start: 20090907
  5. DIFLUNISAL [Concomitant]
     Route: 048
     Dates: start: 20100319
  6. ECONAZOLE [Concomitant]
     Dosage: APPLY A SMALL AMOUNT TO AFFECTED AREA TWICE A DAY
     Dates: start: 20100106
  7. GABAPENTIN [Concomitant]
     Route: 048
     Dates: start: 20100226
  8. HYDROCHLOROTHIAZIDE [Concomitant]
     Route: 048
     Dates: start: 20090907
  9. KLOR CON [Concomitant]
     Dosage: 25 meq/pk powder for solution (Use 1 packet daily)
     Dates: start: 20100421
  10. NASONEX [Concomitant]
     Route: 045
     Dates: start: 20100421
  11. SERTRALINE [Concomitant]
     Route: 048
  12. TOPIRAMATE [Concomitant]
     Route: 048
     Dates: start: 20090907
  13. ZANTAC [Concomitant]
     Route: 048
     Dates: start: 20100426
  14. TRAMADOL [Concomitant]
     Dosage: ONE BY MOUTH EVERY SIX HOURS
     Route: 048
     Dates: start: 20100128
  15. AVANDIA [Concomitant]
     Route: 048

REACTIONS (7)
  - Diabetes mellitus [Unknown]
  - Rhinitis allergic [Unknown]
  - Hypertension [Unknown]
  - Hyperlipidaemia [Unknown]
  - Gastrooesophageal reflux disease [Unknown]
  - Low density lipoprotein increased [Unknown]
  - Blood cholesterol increased [Unknown]
